FAERS Safety Report 15000066 (Version 1)
Quarter: 2018Q2

REPORT INFORMATION
  Report Type: Spontaneous
  Country: US (occurrence: US)
  Receive Date: 20180612
  Receipt Date: 20180612
  Transmission Date: 20180711
  Serious: No
  Sender: FDA-Public Use
  Company Number: US-GLAXOSMITHKLINE-US2018100169

PATIENT
  Age: 77 Year
  Sex: Female

DRUGS (1)
  1. DICLOFENAC SODIUM GEL [Suspect]
     Active Substance: DICLOFENAC SODIUM
     Indication: ARTHRITIS
     Dosage: UNK
     Dates: start: 20180520, end: 20180522

REACTIONS (4)
  - Skin discolouration [Recovered/Resolved]
  - Underdose [Unknown]
  - Adverse drug reaction [Recovered/Resolved]
  - Peripheral swelling [Recovered/Resolved]

NARRATIVE: CASE EVENT DATE: 20180520
